FAERS Safety Report 6594540-7 (Version None)
Quarter: 2010Q1

REPORT INFORMATION
  Report Type: 
  Country: None (occurrence: None)
  Receive Date: 20100218
  Receipt Date: 20100218
  Transmission Date: 20100710
  Serious: Yes (Hospitalization)
  Sender: FDA-Public Use
  Company Number: None

PATIENT
  Age: 61 Year
  Sex: Male

DRUGS (2)
  1. LISINOPRIL [Suspect]
     Indication: HYPERTENSION
     Dosage: 40 MG EVERY DAY PO
     Route: 048
     Dates: start: 20060224, end: 20090313
  2. SIMVASTATIN [Suspect]
     Indication: HYPERLIPIDAEMIA
     Dosage: 40 MG AT BEDTIME PO
     Route: 048
     Dates: start: 20090209, end: 20090313

REACTIONS (8)
  - ANGIOEDEMA [None]
  - DYSPHAGIA [None]
  - DYSPHONIA [None]
  - LIP SWELLING [None]
  - PHARYNGEAL OEDEMA [None]
  - SCROTAL SWELLING [None]
  - SWELLING FACE [None]
  - THROAT IRRITATION [None]
